FAERS Safety Report 4406440-9 (Version None)
Quarter: 2004Q3

REPORT INFORMATION
  Report Type: 
  Country: None (occurrence: None)
  Receive Date: 20040723
  Receipt Date: 20030804
  Transmission Date: 20050211
  Serious: No
  Sender: FDA-Public Use
  Company Number: US-GLAXOSMITHKLINE-A0419491A

PATIENT
  Age: 59 Year
  Sex: Male

DRUGS (6)
  1. AVANDIA [Suspect]
     Dosage: 8MG PER DAY
     Route: 048
     Dates: start: 20030701
  2. SYNTHROID [Concomitant]
  3. ATENOLOL [Concomitant]
  4. ALLOPURINOL [Concomitant]
  5. TRIAMTERENE AND HYDROCHLOROTHIAZIDE [Concomitant]
  6. WELLBUTRIN [Concomitant]

REACTIONS (6)
  - ABDOMINAL DISTENSION [None]
  - ABDOMINAL PAIN UPPER [None]
  - ANOREXIA [None]
  - FATIGUE [None]
  - FLATULENCE [None]
  - WEIGHT DECREASED [None]
